FAERS Safety Report 9248079 (Version 1)
Quarter: 2013Q2

REPORT INFORMATION
  Report Type: Spontaneous
  Country: US (occurrence: None)
  Receive Date: 20130419
  Receipt Date: 20130419
  Transmission Date: 20140414
  Serious: Yes (Other)
  Sender: FDA-Public Use
  Company Number: None

PATIENT
  Age: 43 Year
  Sex: Male
  Weight: 114.76 kg

DRUGS (1)
  1. ZOLPIDEM [Suspect]
     Indication: INSOMNIA
     Dosage: 1 TABLET, DAILY, PO
     Route: 048
     Dates: start: 20120215, end: 20120523

REACTIONS (7)
  - Amnesia [None]
  - Hallucination [None]
  - Delusion [None]
  - Cognitive disorder [None]
  - Somnolence [None]
  - Abnormal behaviour [None]
  - Legal problem [None]
